FAERS Safety Report 15714749 (Version 1)
Quarter: 2018Q4

REPORT INFORMATION
  Report Type: Spontaneous
  Country: US (occurrence: US)
  Receive Date: 20181212
  Receipt Date: 20181212
  Transmission Date: 20190205
  Serious: No
  Sender: FDA-Public Use
  Company Number: US-MYLANLABS-2018M1092579

PATIENT
  Sex: Female

DRUGS (3)
  1. LITHIUM MYLAN [Suspect]
     Active Substance: LITHIUM
     Indication: PRODUCT USED FOR UNKNOWN INDICATION
     Dosage: UNK
  2. LATUDA [Suspect]
     Active Substance: LURASIDONE HYDROCHLORIDE
     Indication: PRODUCT USED FOR UNKNOWN INDICATION
     Dosage: 120 MILLIGRAM, QD (THREE TABLETS AT NIGHT)
     Route: 048
     Dates: start: 201606, end: 2016
  3. LATUDA [Suspect]
     Active Substance: LURASIDONE HYDROCHLORIDE
     Dosage: 120 MILLIGRAM, QD
     Route: 048
     Dates: start: 2016, end: 2016

REACTIONS (4)
  - Feeling abnormal [Unknown]
  - Abnormal behaviour [Unknown]
  - Weight increased [Unknown]
  - Screaming [Unknown]

NARRATIVE: CASE EVENT DATE: 2016
